FAERS Safety Report 6609322 (Version 2)
Quarter: 2016Q1

REPORT INFORMATION
  Report Type: Spontaneous
  Country: CA (occurrence: CA)
  Receive Date: 20080408
  Receipt Date: 20160224
  Transmission Date: 20160526
  Serious: Yes (Disabling, Other)
  Sender: FDA-Public Use
  Company Number: CA-PFIZER INC-2008028343

PATIENT
  Sex: Male

DRUGS (2)
  1. CHAMPIX [Suspect]
     Active Substance: VARENICLINE TARTRATE
     Indication: SMOKING CESSATION THERAPY
     Dosage: UNK
     Route: 048
     Dates: start: 2008, end: 2008
  2. ZYBAN [Concomitant]
     Active Substance: BUPROPION HYDROCHLORIDE

REACTIONS (7)
  - Suicidal ideation [Unknown]
  - Crying [Unknown]
  - Aggression [Unknown]
  - Abnormal behaviour [Unknown]
  - Psychotic disorder [Unknown]
  - Depression [Unknown]
  - Insomnia [Unknown]
